FAERS Safety Report 8303358-6 (Version None)
Quarter: 2012Q2

REPORT INFORMATION
  Report Type: 
  Country: None (occurrence: None)
  Receive Date: 20120423
  Receipt Date: 20120412
  Transmission Date: 20120825
  Serious: No
  Sender: FDA-Public Use
  Company Number: US-BIOGENIDEC-2012BI000150

PATIENT
  Age: 31 Year
  Sex: Male

DRUGS (1)
  1. AVONEX [Suspect]
     Indication: MULTIPLE SCLEROSIS
     Route: 030
     Dates: start: 20111230

REACTIONS (6)
  - HEART RATE INCREASED [None]
  - INFLUENZA LIKE ILLNESS [None]
  - VERTIGO [None]
  - MULTIPLE SCLEROSIS [None]
  - VISUAL IMPAIRMENT [None]
  - METAMORPHOPSIA [None]
